FAERS Safety Report 26022510 (Version 1)
Quarter: 2025Q4

REPORT INFORMATION
  Report Type: Spontaneous
  Country: EU (occurrence: EU)
  Receive Date: 20251110
  Receipt Date: 20251110
  Transmission Date: 20260117
  Serious: Yes (Other)
  Sender: BRISTOL-MYERS SQUIBB COMPANY
  Company Number: EU-BRISTOL-MYERS SQUIBB COMPANY-2025-149645

PATIENT

DRUGS (11)
  1. NIVOLUMAB [Suspect]
     Active Substance: NIVOLUMAB
     Indication: Non-small cell lung cancer
     Dosage: 1ST CYCLE
  2. NIVOLUMAB [Suspect]
     Active Substance: NIVOLUMAB
     Dosage: 2ND CYCLE
  3. IPILIMUMAB [Suspect]
     Active Substance: IPILIMUMAB
     Indication: Non-small cell lung cancer
     Dosage: 1ST CYCLE
  4. IPILIMUMAB [Suspect]
     Active Substance: IPILIMUMAB
     Dosage: 2ND CYCLE
  5. PEMETREXED [Suspect]
     Active Substance: PEMETREXED
     Indication: Non-small cell lung cancer
     Dosage: 1ST CYCLE
  6. PEMETREXED [Suspect]
     Active Substance: PEMETREXED
     Dosage: 2ND CYCLE
  7. CISPLATIN [Suspect]
     Active Substance: CISPLATIN
     Indication: Non-small cell lung cancer
     Dosage: 1ST CYCLE
  8. CISPLATIN [Suspect]
     Active Substance: CISPLATIN
     Dosage: 2ND CYCLE
  9. HYDROXYUREA [Concomitant]
     Active Substance: HYDROXYUREA
     Indication: Product used for unknown indication
  10. UNSPECIFIED INGREDIENT [Concomitant]
     Active Substance: UNSPECIFIED INGREDIENT
     Indication: Product used for unknown indication
  11. HYDROXYUREA [Concomitant]
     Active Substance: HYDROXYUREA
     Indication: Product used for unknown indication

REACTIONS (9)
  - Colitis [Recovering/Resolving]
  - Tubulointerstitial nephritis [Unknown]
  - Non-small cell lung cancer [Unknown]
  - Metastases to central nervous system [Unknown]
  - Dyspnoea [Unknown]
  - Essential thrombocythaemia [Unknown]
  - Abdominal pain [Unknown]
  - Faecaloma [Unknown]
  - Brain oedema [Unknown]

NARRATIVE: CASE EVENT DATE: 20241101
